FAERS Safety Report 25237725 (Version 1)
Quarter: 2025Q2

REPORT INFORMATION
  Report Type: Spontaneous
  Country: US (occurrence: US)
  Receive Date: 20250425
  Receipt Date: 20250425
  Transmission Date: 20250716
  Serious: No
  Sender: UCB
  Company Number: US-UCBSA-2025008437

PATIENT

DRUGS (1)
  1. RYSTIGGO [Suspect]
     Active Substance: ROZANOLIXIZUMAB-NOLI
     Indication: Product used for unknown indication
     Dates: end: 202412

REACTIONS (2)
  - Arthralgia [Unknown]
  - Upper respiratory tract infection [Unknown]
